FAERS Safety Report 25175245 (Version 1)
Quarter: 2025Q2

REPORT INFORMATION
  Report Type: Report from Study
  Country: US (occurrence: US)
  Receive Date: 20250408
  Receipt Date: 20250408
  Transmission Date: 20250716
  Serious: No
  Sender: TG THERAPEUTICS
  Company Number: US-TG THERAPEUTICS INC.-TGT004441

PATIENT

DRUGS (2)
  1. UBLITUXIMAB [Suspect]
     Active Substance: UBLITUXIMAB
     Indication: Multiple sclerosis
     Route: 042
     Dates: start: 20241118, end: 20241118
  2. UBLITUXIMAB [Suspect]
     Active Substance: UBLITUXIMAB
     Route: 042
     Dates: start: 20241202, end: 20241202

REACTIONS (4)
  - Appetite disorder [Unknown]
  - Nausea [Unknown]
  - Dizziness [Unknown]
  - Sluggishness [Unknown]

NARRATIVE: CASE EVENT DATE: 20240101
